FAERS Safety Report 6763379-1 (Version None)
Quarter: 2010Q2

REPORT INFORMATION
  Report Type: 
  Country: None (occurrence: None)
  Receive Date: 20100610
  Receipt Date: 20100601
  Transmission Date: 20101027
  Serious: No
  Sender: FDA-Public Use
  Company Number: US-ROXANE LABORATORIES, INC.-2010-RO-00701RO

PATIENT

DRUGS (2)
  1. DIGOXIN [Suspect]
  2. DRONEDARONE HCL [Suspect]
     Route: 048

REACTIONS (1)
  - BRADYCARDIA [None]
